FAERS Safety Report 5211575-7 (Version None)
Quarter: 2007Q1

REPORT INFORMATION
  Report Type: 
  Country: None (occurrence: None)
  Receive Date: 20070116
  Receipt Date: 20070116
  Transmission Date: 20070707
  Serious: No
  Sender: FDA-Public Use
  Company Number: None

PATIENT
  Sex: Female
  Weight: 90.2658 kg

DRUGS (2)
  1. ENBREL [Suspect]
     Indication: RHEUMATOID ARTHRITIS
     Dosage: 50 MG Q WK Q WK SQ
     Route: 058
     Dates: start: 20060117, end: 20060714
  2. ENBREL [Suspect]
     Indication: RHEUMATOID ARTHRITIS
     Dosage: 50 MG Q WK Q WK SQ
     Route: 058
     Dates: start: 20061216, end: 20061220

REACTIONS (2)
  - ABDOMINAL PAIN LOWER [None]
  - VOMITING [None]
